FAERS Safety Report 19001531 (Version 2)
Quarter: 2021Q1

REPORT INFORMATION
  Report Type: Spontaneous
  Country: US (occurrence: US)
  Receive Date: 20210312
  Receipt Date: 20210315
  Transmission Date: 20210420
  Serious: No
  Sender: FDA-Public Use
  Company Number: US-FARMAPROD-202007-0953

PATIENT
  Sex: Female

DRUGS (15)
  1. ALPRAZOLAM. [Concomitant]
     Active Substance: ALPRAZOLAM
  2. COSOPT PF [Concomitant]
     Active Substance: DORZOLAMIDE HYDROCHLORIDE\TIMOLOL MALEATE
     Dosage: 2%?0.5% DROPERETTE
  3. ZIOPTAN [Concomitant]
     Active Substance: TAFLUPROST
     Dosage: DROPERETTE
  4. DUREZOL [Concomitant]
     Active Substance: DIFLUPREDNATE
  5. FAMCICLOVIR. [Concomitant]
     Active Substance: FAMCICLOVIR
  6. JARDIANCE [Concomitant]
     Active Substance: EMPAGLIFLOZIN
  7. OXERVATE [Suspect]
     Active Substance: CENEGERMIN-BKBJ
     Indication: NEUROTROPHIC KERATOPATHY
     Route: 047
     Dates: start: 20200603
  8. MOXIFLOXACIN. [Concomitant]
     Active Substance: MOXIFLOXACIN
  9. PRILOSEC [Concomitant]
     Active Substance: OMEPRAZOLE MAGNESIUM
     Dosage: DELAY RELEASE TABLET
  10. GLIPIZIDE. [Concomitant]
     Active Substance: GLIPIZIDE
  11. DOXYCYCLINE HYCLATE. [Concomitant]
     Active Substance: DOXYCYCLINE HYCLATE
  12. FLORASTOR [Concomitant]
     Active Substance: SACCHAROMYCES CEREVISIAE
  13. JANUVIA [Concomitant]
     Active Substance: SITAGLIPTIN PHOSPHATE
  14. CYCLOSPORINE IN KLARITY [Concomitant]
  15. CALCIUM?VITAMINE [Concomitant]

REACTIONS (4)
  - Product dose omission issue [Unknown]
  - Eye pain [Unknown]
  - Ocular discomfort [Unknown]
  - Corneal erosion [Unknown]
